FAERS Safety Report 26214944 (Version 1)
Quarter: 2025Q4

REPORT INFORMATION
  Report Type: Spontaneous
  Country: US (occurrence: US)
  Receive Date: 20251230
  Receipt Date: 20251230
  Transmission Date: 20260117
  Serious: Yes (Death)
  Sender: PROVEPHARM
  Company Number: US-Provepharm-2191613

PATIENT
  Age: 78 Year
  Sex: Male

DRUGS (3)
  1. PROVAYBLUE [Suspect]
     Active Substance: METHYLENE BLUE
     Indication: Methaemoglobinaemia
  2. BENZOCAINE [Concomitant]
     Route: 061
  3. oral vitamin C [Concomitant]

REACTIONS (2)
  - Acute respiratory distress syndrome [Fatal]
  - PO2 decreased [Fatal]
